FAERS Safety Report 16924205 (Version 2)
Quarter: 2019Q4

REPORT INFORMATION
  Report Type: Spontaneous
  Country: US (occurrence: US)
  Receive Date: 20191016
  Receipt Date: 20191025
  Transmission Date: 20200122
  Serious: Yes (Hospitalization)
  Sender: FDA-Public Use
  Company Number: US-ELI_LILLY_AND_COMPANY-US201910007401

PATIENT
  Sex: Male

DRUGS (4)
  1. BASAGLAR [Suspect]
     Active Substance: INSULIN GLARGINE
     Indication: TYPE 2 DIABETES MELLITUS
     Dosage: UNK UNK, DAILY (UPTO 20 UNITS DAILY)
     Route: 058
     Dates: start: 2016, end: 2017
  2. METFORMIN [Concomitant]
     Active Substance: METFORMIN HYDROCHLORIDE
     Indication: TYPE 2 DIABETES MELLITUS
     Dosage: 1000 MG, BID
  3. LIPITOR [Concomitant]
     Active Substance: ATORVASTATIN CALCIUM
     Indication: BLOOD CHOLESTEROL INCREASED
     Dosage: UNK
  4. BASAGLAR [Suspect]
     Active Substance: INSULIN GLARGINE
     Dosage: UNK UNK, DAILY (UPTO 20 UNITS DAILY)
     Route: 058
     Dates: start: 2017

REACTIONS (11)
  - Road traffic accident [Unknown]
  - Blood glucose decreased [Unknown]
  - Concussion [Unknown]
  - Loss of consciousness [Recovering/Resolving]
  - Animal bite [Unknown]
  - Muscle spasms [Recovering/Resolving]
  - Clavicle fracture [Not Recovered/Not Resolved]
  - Product storage error [Unknown]
  - Blood glucose increased [Unknown]
  - Accidental underdose [Unknown]
  - Incorrect product administration duration [Unknown]

NARRATIVE: CASE EVENT DATE: 201704
